FAERS Safety Report 18217033 (Version 2)
Quarter: 2020Q3

REPORT INFORMATION
  Report Type: Spontaneous
  Country: US (occurrence: US)
  Receive Date: 20200901
  Receipt Date: 20200901
  Transmission Date: 20201103
  Serious: Yes (Hospitalization)
  Sender: FDA-Public Use
  Company Number: US-BIOVITRUM-2020US4574

PATIENT
  Age: 4 Year
  Sex: Female

DRUGS (2)
  1. TOCILIZUMAB. [Suspect]
     Active Substance: TOCILIZUMAB
     Indication: STILL^S DISEASE
  2. ANAKINRA [Suspect]
     Active Substance: ANAKINRA
     Indication: STILL^S DISEASE
     Dates: start: 2018

REACTIONS (9)
  - Hyperferritinaemia [Unknown]
  - Blood pressure decreased [Unknown]
  - Hepatic enzyme increased [Unknown]
  - Oropharyngeal pain [Unknown]
  - Off label use [Recovered/Resolved]
  - Pain [Unknown]
  - Rash [Unknown]
  - Retching [Unknown]
  - Rash pruritic [Unknown]

NARRATIVE: CASE EVENT DATE: 2018
